FAERS Safety Report 23124298 (Version 1)
Quarter: 2023Q4

REPORT INFORMATION
  Report Type: Spontaneous
  Country: CN (occurrence: CN)
  Receive Date: 20231030
  Receipt Date: 20231030
  Transmission Date: 20240110
  Serious: Yes (Other)
  Sender: FDA-Public Use
  Company Number: CN-MYLANLABS-2023M1114000

PATIENT
  Age: 52 Year
  Sex: Male
  Weight: 78 kg

DRUGS (3)
  1. LYRICA [Suspect]
     Active Substance: PREGABALIN
     Indication: Antiinflammatory therapy
     Dosage: 75 MILLIGRAM, QD
     Route: 048
     Dates: start: 20230928, end: 20231018
  2. CEFACLOR [Suspect]
     Active Substance: CEFACLOR
     Indication: Wound infection
     Dosage: 0.375 GRAM, BID
     Route: 048
     Dates: start: 20230928, end: 20231018
  3. CELECOXIB [Concomitant]
     Active Substance: CELECOXIB
     Indication: Antiinflammatory therapy
     Dosage: 0.2 GRAM, BID
     Route: 048
     Dates: start: 20230928, end: 20231018

REACTIONS (3)
  - Neutropenia [Recovering/Resolving]
  - White blood cell count decreased [Recovering/Resolving]
  - Anaemia [Recovering/Resolving]

NARRATIVE: CASE EVENT DATE: 20231018
